FAERS Safety Report 5167586-3 (Version None)
Quarter: 2006Q4

REPORT INFORMATION
  Report Type: 
  Country: None (occurrence: None)
  Receive Date: 20060918
  Receipt Date: 20060504
  Transmission Date: 20070319
  Serious: Yes (Other)
  Sender: FDA-Public Use
  Company Number: US-JNJFOC-20060501647

PATIENT
  Age: 28 Year
  Sex: Female

DRUGS (5)
  1. TOPAMAX [Suspect]
     Indication: MIGRAINE PROPHYLAXIS
     Dosage: 25 MG, 1 IN 1 DAY, ORAL
     Route: 047
  2. ZOLOFT [Concomitant]
  3. ZANAX (ALPRAZOLAM) [Concomitant]
  4. AMITRYPTILINE (AMITRIPTYLINE) [Concomitant]
  5. FIORICET [Concomitant]

REACTIONS (2)
  - HYPOAESTHESIA [None]
  - SYNCOPE [None]
